FAERS Safety Report 22627582 (Version 1)
Quarter: 2023Q2

REPORT INFORMATION
  Report Type: Report from Study
  Country: SE (occurrence: SE)
  Receive Date: 20230622
  Receipt Date: 20230622
  Transmission Date: 20230721
  Serious: Yes (Hospitalization)
  Sender: FDA-Public Use
  Company Number: SE-GENMAB-2023-00609

PATIENT
  Age: 86 Year
  Sex: Female
  Weight: 57.1 kg

DRUGS (44)
  1. EPCORITAMAB [Suspect]
     Active Substance: EPCORITAMAB
     Indication: Diffuse large B-cell lymphoma stage IV
     Dosage: PRIMING DOSE: 0.32 MILLIGRAM, SINGLE
     Route: 058
     Dates: start: 20230206, end: 20230206
  2. EPCORITAMAB [Suspect]
     Active Substance: EPCORITAMAB
     Dosage: INTERMEDIATE DOSE: 1.6 MILLIGRAM, SINGLE
     Route: 058
     Dates: start: 20230213, end: 20230213
  3. EPCORITAMAB [Suspect]
     Active Substance: EPCORITAMAB
     Dosage: FULL DOSE: 48 MILLIGRAM, WEEKLY
     Route: 058
     Dates: start: 20230221, end: 20230328
  4. EPCORITAMAB [Suspect]
     Active Substance: EPCORITAMAB
     Dosage: FULL DOSE: 48 MILLIGRAM, WEEKLY
     Route: 058
     Dates: start: 20230411
  5. DESLORATADINE [Concomitant]
     Active Substance: DESLORATADINE
     Indication: Premedication
     Dosage: 10 MILLIGRAM, SINGLE
     Route: 048
     Dates: start: 20230206, end: 20230206
  6. DESLORATADINE [Concomitant]
     Active Substance: DESLORATADINE
     Dosage: 10 MILLIGRAM, SINGLE
     Route: 048
     Dates: start: 20230213, end: 20230213
  7. DESLORATADINE [Concomitant]
     Active Substance: DESLORATADINE
     Dosage: 10 MILLIGRAM, SINGLE
     Route: 048
     Dates: start: 20230221, end: 20230221
  8. DESLORATADINE [Concomitant]
     Active Substance: DESLORATADINE
     Dosage: 10 MILLIGRAM, SINGLE
     Route: 048
     Dates: start: 20230307, end: 20230307
  9. ACETAMINOPHEN [Concomitant]
     Active Substance: ACETAMINOPHEN
     Indication: Premedication
     Dosage: 1 GRAM, SINGLE
     Route: 048
     Dates: start: 20230206, end: 20230206
  10. ACETAMINOPHEN [Concomitant]
     Active Substance: ACETAMINOPHEN
     Dosage: 1 GRAM, SINGLE
     Route: 048
     Dates: start: 20230213, end: 20230213
  11. ACETAMINOPHEN [Concomitant]
     Active Substance: ACETAMINOPHEN
     Dosage: 1 GRAM, SINGLE
     Route: 048
     Dates: start: 20230221, end: 20230221
  12. ACETAMINOPHEN [Concomitant]
     Active Substance: ACETAMINOPHEN
     Dosage: 1 GRAM, SINGLE
     Route: 048
     Dates: start: 20230307, end: 20230307
  13. DEXAMETHASONE [Concomitant]
     Active Substance: DEXAMETHASONE
     Indication: Premedication
     Dosage: 15 MILLIGRAM, SINGLE
     Route: 042
     Dates: start: 20230206, end: 20230206
  14. DEXAMETHASONE [Concomitant]
     Active Substance: DEXAMETHASONE
     Indication: Prophylaxis
     Dosage: 15 MILLIGRAM, QD
     Route: 048
     Dates: start: 20230207, end: 20230209
  15. DEXAMETHASONE [Concomitant]
     Active Substance: DEXAMETHASONE
     Dosage: 15 MILLIGRAM, SINGLE
     Route: 042
     Dates: start: 20230213, end: 20230213
  16. DEXAMETHASONE [Concomitant]
     Active Substance: DEXAMETHASONE
     Dosage: 15 MILLIGRAM, QD
     Route: 048
     Dates: start: 20230214, end: 20230216
  17. DEXAMETHASONE [Concomitant]
     Active Substance: DEXAMETHASONE
     Dosage: 15 MILLIGRAM, SINGLE
     Route: 048
     Dates: start: 20230221, end: 20230221
  18. DEXAMETHASONE [Concomitant]
     Active Substance: DEXAMETHASONE
     Dosage: 15 MILLIGRAM, QD
     Route: 048
     Dates: start: 20230222, end: 20230224
  19. DEXAMETHASONE [Concomitant]
     Active Substance: DEXAMETHASONE
     Dosage: 15 MILLIGRAM, SINGLE
     Route: 048
     Dates: start: 20230307, end: 20230307
  20. DEXAMETHASONE [Concomitant]
     Active Substance: DEXAMETHASONE
     Dosage: 15 MILLIGRAM, QD
     Route: 048
     Dates: start: 20230308, end: 20230310
  21. ALBUMIN HUMAN [Concomitant]
     Active Substance: ALBUMIN HUMAN
     Indication: Oedema peripheral
     Dosage: 20 GRAM, SINGLE
     Route: 042
     Dates: start: 20230509, end: 20230509
  22. ALBUMIN HUMAN [Concomitant]
     Active Substance: ALBUMIN HUMAN
     Dosage: 20 GRAM, SINGLE
     Route: 042
     Dates: start: 20230512, end: 20230512
  23. ATORVASTATIN [Concomitant]
     Active Substance: ATORVASTATIN
     Dosage: 40 MILLIGRAM, QD
     Route: 048
     Dates: start: 20190115
  24. CLOPIDOGREL [Concomitant]
     Active Substance: CLOPIDOGREL BISULFATE
     Dosage: 75 MILLIGRAM, BID
     Route: 048
     Dates: start: 20200826
  25. FUROSEMIDE [Concomitant]
     Active Substance: FUROSEMIDE
     Indication: Oedema peripheral
     Dosage: 20 MILLIGRAM, SINGLE
     Route: 042
     Dates: start: 20230407, end: 20230407
  26. FUROSEMIDE [Concomitant]
     Active Substance: FUROSEMIDE
     Dosage: 60 MILLIGRAM, SINGLE
     Route: 042
     Dates: start: 20230408, end: 20230408
  27. FUROSEMIDE [Concomitant]
     Active Substance: FUROSEMIDE
     Dosage: 40 MILLIGRAM, SINGLE
     Route: 042
     Dates: start: 20230409, end: 20230411
  28. FUROSEMIDE [Concomitant]
     Active Substance: FUROSEMIDE
     Dosage: 40 MILLIGRAM, QAM (QD)
     Route: 048
     Dates: start: 20230412, end: 20230413
  29. FUROSEMIDE [Concomitant]
     Active Substance: FUROSEMIDE
     Dosage: 40 MILLIGRAM, BID
     Route: 048
     Dates: start: 20230414, end: 20230418
  30. POTASSIUM CHLORIDE [Concomitant]
     Active Substance: POTASSIUM CHLORIDE
     Indication: Hypokalaemia
     Dosage: 750 MILLIGRAM, Q12H
     Route: 048
     Dates: start: 20230412, end: 20230418
  31. MELATONIN [Concomitant]
     Active Substance: MELATONIN
     Dosage: 3 MILLIGRAM, OCCASIONAL
     Route: 048
     Dates: start: 20220518
  32. MEROPENEM [Concomitant]
     Active Substance: MEROPENEM
     Indication: Urinary tract infection
     Dosage: 500 MILLIGRAM, TID
     Route: 042
     Dates: start: 20230228, end: 20230303
  33. METOPROLOL [Concomitant]
     Active Substance: METOPROLOL
     Dosage: 50 MILLIGRAM, QD
     Route: 048
     Dates: start: 20181203
  34. IRON ISOMALTOSIDE 1000 [Concomitant]
     Active Substance: IRON ISOMALTOSIDE 1000
     Indication: Anaemia
     Dosage: 1500 MILLIGRAM, SINGLE
     Route: 042
     Dates: start: 20230515, end: 20230515
  35. SODIUM CHLORIDE [Concomitant]
     Active Substance: SODIUM CHLORIDE
     Indication: Hyponatraemia
     Dosage: 500 MILLIGRAM, BID
     Route: 048
     Dates: start: 20160425
  36. SODIUM CHLORIDE [Concomitant]
     Active Substance: SODIUM CHLORIDE
     Indication: Hyponatraemia
     Dosage: CONCENTRATE 4 MMOL/ML, 20 MILLILITER, SINGLE
     Route: 042
     Dates: start: 20230306, end: 20230306
  37. SODIUM CHLORIDE [Concomitant]
     Active Substance: SODIUM CHLORIDE
     Dosage: 500 MILLIGRAM, TID
     Route: 048
     Dates: start: 20230305
  38. OMEPRAZOLE [Concomitant]
     Active Substance: OMEPRAZOLE
     Dosage: 20 MILLIGRAM, QD
     Route: 048
     Dates: start: 20211012
  39. AMITRIPTYLINE [Concomitant]
     Active Substance: AMITRIPTYLINE
     Dosage: 10 MILLIGRAM, QD
     Route: 048
     Dates: start: 20220422
  40. SCHERIPROCT [CINCHOCAINE HYDROCHLORIDE;PREDNISOLONE CAPROATE] [Concomitant]
     Indication: Haemorrhoids
     Dosage: 1,3/1 MG, BID
     Route: 054
     Dates: start: 20230412, end: 20230413
  41. SCHERIPROCT [CINCHOCAINE HYDROCHLORIDE;PREDNISOLONE CAPROATE] [Concomitant]
     Dosage: 1,3/1 MG, QD
     Route: 054
     Dates: start: 20230413
  42. TRAMADOL [Concomitant]
     Active Substance: TRAMADOL
     Dosage: 100 MILLIGRAM, (0.5 X 2)
     Route: 048
     Dates: start: 20160810
  43. TRAMADOL [Concomitant]
     Active Substance: TRAMADOL
     Dosage: 50 MILLIGRAM, QD (QPM)
     Route: 048
     Dates: start: 20230301
  44. VALACYCLOVIR HYDROCHLORIDE [Concomitant]
     Active Substance: VALACYCLOVIR HYDROCHLORIDE
     Indication: Herpes virus infection
     Dosage: 1000 MILLIGRAM, Q8H
     Route: 048
     Dates: start: 20230411, end: 20230416

REACTIONS (2)
  - Erysipelas [Recovered/Resolved]
  - Erysipelas [Recovered/Resolved]

NARRATIVE: CASE EVENT DATE: 20230301
